FAERS Safety Report 8759575 (Version 3)
Quarter: 2013Q3

REPORT INFORMATION
  Report Type: Report from Study
  Country: DE (occurrence: DE)
  Receive Date: 20120829
  Receipt Date: 20130916
  Transmission Date: 20140515
  Serious: Yes (Other)
  Sender: FDA-Public Use
  Company Number: DE-UCBSA-064205

PATIENT
  Sex: Female

DRUGS (9)
  1. CIMZIA [Suspect]
     Indication: RHEUMATOID ARTHRITIS
     Dates: start: 20110302
  2. RAMIPRIL COMP [Concomitant]
     Indication: HYPERTENSION
     Dosage: 5/25 MG
     Dates: start: 20091229
  3. AMLODIPIN [Concomitant]
     Indication: HYPERTENSION
     Dates: start: 20091229
  4. CALICARE D3 [Concomitant]
     Indication: OSTEOPOROSIS PROPHYLAXIS
     Dates: start: 20091229
  5. ACTONEL [Concomitant]
     Indication: OSTEOPOROSIS PROPHYLAXIS
     Dates: start: 20081021
  6. TRAMADOL [Concomitant]
     Indication: FIBROMYALGIA
     Dates: start: 20050105
  7. PREDNI H [Concomitant]
     Indication: RHEUMATOID ARTHRITIS
     Dates: start: 20101005
  8. PREDNI H [Concomitant]
     Indication: RHEUMATOID ARTHRITIS
     Dates: start: 2011, end: 20110619
  9. PREDNI H [Concomitant]
     Indication: RHEUMATOID ARTHRITIS
     Dates: start: 20110620

REACTIONS (1)
  - Systemic lupus erythematosus [Not Recovered/Not Resolved]
